FAERS Safety Report 23490215 (Version 2)
Quarter: 2024Q4

REPORT INFORMATION
  Report Type: Spontaneous
  Country: US (occurrence: US)
  Receive Date: 20240206
  Receipt Date: 20241018
  Transmission Date: 20250115
  Serious: No
  Sender: ROCHE
  Company Number: US-ROCHE-3478960

PATIENT
  Age: 68 Year
  Sex: Female

DRUGS (3)
  1. XOLAIR [Suspect]
     Active Substance: OMALIZUMAB
     Indication: Product used for unknown indication
     Dosage: FREQUENCY TEXT:5-6 WEEKS
     Route: 058
     Dates: start: 202105
  2. XOLAIR [Suspect]
     Active Substance: OMALIZUMAB
  3. MENOSTAR [Concomitant]
     Active Substance: ESTRADIOL
     Indication: Osteoporosis

REACTIONS (3)
  - Syringe issue [Unknown]
  - Underdose [Unknown]
  - No adverse event [Unknown]
